FAERS Safety Report 25407656 (Version 1)
Quarter: 2025Q2

REPORT INFORMATION
  Report Type: Spontaneous
  Country: FR (occurrence: FR)
  Receive Date: 20250606
  Receipt Date: 20250606
  Transmission Date: 20250717
  Serious: Yes (Other)
  Sender: PFIZER
  Company Number: FR-PFM-2025-02717

PATIENT
  Age: 85 Year
  Sex: Male

DRUGS (4)
  1. MEKTOVI [Suspect]
     Active Substance: BINIMETINIB
     Route: 065
  2. MEKTOVI [Suspect]
     Active Substance: BINIMETINIB
     Route: 065
  3. BRAFTOVI [Suspect]
     Active Substance: ENCORAFENIB
     Route: 065
  4. BRAFTOVI [Suspect]
     Active Substance: ENCORAFENIB
     Dosage: 4 DF, QD (1/DAY), 4 CAPSULES OF BRAFTOVI 75 MG ONCE DAILY (I.E. 300 MG/DAY)
     Route: 065

REACTIONS (3)
  - Liver injury [Unknown]
  - Product use issue [Unknown]
  - Off label use [Unknown]
